FAERS Safety Report 5389223-5 (Version None)
Quarter: 2007Q3

REPORT INFORMATION
  Report Type: 
  Country: None (occurrence: None)
  Receive Date: 20070717
  Receipt Date: 20070711
  Transmission Date: 20080115
  Serious: Yes (Hospitalization)
  Sender: FDA-Public Use
  Company Number: JP-GENENTECH-237153

PATIENT
  Sex: Male
  Weight: 70 kg

DRUGS (6)
  1. RITUXIMAB [Suspect]
     Indication: NON-HODGKIN'S LYMPHOMA
     Dosage: 375 MG, UNK
     Route: 042
     Dates: start: 20000614
  2. ZEVALIN [Suspect]
     Indication: NON-HODGKIN'S LYMPHOMA
     Dosage: 191.1 MBQ, UNK
     Route: 042
     Dates: start: 20020806
  3. CLADRIBINE [Suspect]
     Indication: NON-HODGKIN'S LYMPHOMA
     Dosage: 0.09 MG, UNK
     Route: 042
     Dates: start: 20040510, end: 20040615
  4. CYCLOPHOSPHAMIDE [Suspect]
     Indication: NON-HODGKIN'S LYMPHOMA
     Dosage: 75 MG, UNK
     Route: 042
     Dates: start: 20050401, end: 20050912
  5. PREDNISOLONE [Suspect]
     Indication: NON-HODGKIN'S LYMPHOMA
     Dosage: 100 MG, UNK
     Route: 048
     Dates: start: 20050401, end: 20050912
  6. PROCARBAZINE [Suspect]
     Indication: NON-HODGKIN'S LYMPHOMA
     Route: 048
     Dates: start: 20050401, end: 20050912

REACTIONS (1)
  - GASTRIC CANCER [None]
